FAERS Safety Report 15797543 (Version 1)
Quarter: 2019Q1

REPORT INFORMATION
  Report Type: Spontaneous
  Country: US (occurrence: US)
  Receive Date: 20190108
  Receipt Date: 20190108
  Transmission Date: 20190417
  Serious: Yes (Death, Hospitalization)
  Sender: FDA-Public Use
  Company Number: US-BAYER-2019-005053

PATIENT
  Age: 60 Year
  Sex: Female

DRUGS (11)
  1. ACETYLSALICYLIC ACID (} 100 MG) [Suspect]
     Active Substance: ASPIRIN
     Route: 048
  2. LEVOTHYROXINE. [Suspect]
     Active Substance: LEVOTHYROXINE
  3. BUPROPION. [Suspect]
     Active Substance: BUPROPION
  4. ALCOHOL. [Suspect]
     Active Substance: ALCOHOL
  5. ZOLPIDEM [Suspect]
     Active Substance: ZOLPIDEM\ZOLPIDEM TARTRATE
  6. DULOXETINE. [Suspect]
     Active Substance: DULOXETINE
  7. GABAPENTIN. [Suspect]
     Active Substance: GABAPENTIN
  8. AMITRIPTYLINE [Suspect]
     Active Substance: AMITRIPTYLINE
  9. MARIJUANA [Suspect]
     Active Substance: CANNABIS SATIVA SUBSP. INDICA TOP
  10. METFORMIN [Suspect]
     Active Substance: METFORMIN HYDROCHLORIDE
     Dosage: UNK
     Route: 048
  11. INSULIN [Suspect]
     Active Substance: INSULIN NOS

REACTIONS (2)
  - Toxicity to various agents [Fatal]
  - Completed suicide [Fatal]
